FAERS Safety Report 8204913-4 (Version None)
Quarter: 2012Q1

REPORT INFORMATION
  Report Type: 
  Country: None (occurrence: None)
  Receive Date: 20120313
  Receipt Date: 20120306
  Transmission Date: 20120608
  Serious: Yes (Other)
  Sender: FDA-Public Use
  Company Number: US-BAYER-2012-022407

PATIENT
  Age: 63 Year
  Sex: Male
  Weight: 81.633 kg

DRUGS (1)
  1. ALEVE (CAPLET) [Suspect]
     Indication: ANALGESIC THERAPY
     Dosage: 2 DF, PRN, BOTTLE COUNT 100S
     Route: 048
     Dates: end: 20120306

REACTIONS (7)
  - SWOLLEN TONGUE [None]
  - HYPOAESTHESIA ORAL [None]
  - PRURITUS [None]
  - PARAESTHESIA [None]
  - THROAT IRRITATION [None]
  - PHARYNGEAL OEDEMA [None]
  - HYPERSENSITIVITY [None]
